FAERS Safety Report 4355783-6 (Version None)
Quarter: 2004Q2

REPORT INFORMATION
  Report Type: 
  Country: None (occurrence: None)
  Receive Date: 20040505
  Receipt Date: 20040401
  Transmission Date: 20050107
  Serious: Yes (Hospitalization)
  Sender: FDA-Public Use
  Company Number: KII-2004-0009985

PATIENT
  Age: 10 Month
  Sex: Female

DRUGS (1)
  1. OXYCONTIN [Suspect]

REACTIONS (3)
  - ACCIDENTAL EXPOSURE [None]
  - MIOSIS [None]
  - SOMNOLENCE [None]
